FAERS Safety Report 5920089-8 (Version None)
Quarter: 2008Q4

REPORT INFORMATION
  Report Type: 
  Country: None (occurrence: None)
  Receive Date: 20081014
  Receipt Date: 20080925
  Transmission Date: 20090506
  Serious: Yes (Other)
  Sender: FDA-Public Use
  Company Number: WAES 0809FRA00090

PATIENT
  Age: 42 Year
  Sex: Female

DRUGS (3)
  1. METHYLDOPA [Suspect]
     Indication: HYPERTENSION
     Dosage: PO
     Route: 048
     Dates: start: 20070101, end: 20080617
  2. BLACK HOREHOUND (+) HAWTHORN (+) PASSION [Concomitant]
  3. GINKGO (+) HEPTAMINOL HYDROCHLORIDE (+) [Concomitant]

REACTIONS (2)
  - DYSPNOEA [None]
  - HAEMOLYTIC ANAEMIA [None]
